FAERS Safety Report 9123461 (Version 1)
Quarter: 2013Q1

REPORT INFORMATION
  Report Type: Report from Study
  Country: JP (occurrence: JP)
  Receive Date: 20130115
  Receipt Date: 20130115
  Transmission Date: 20140127
  Serious: Yes (Other)
  Sender: FDA-Public Use
  Company Number: PHHY2012JP018437

PATIENT
  Age: 60 Year
  Sex: Female

DRUGS (9)
  1. AMN107 [Suspect]
     Indication: CHRONIC MYELOID LEUKAEMIA
     Dosage: 200 MG, BID
     Route: 048
     Dates: start: 20100517, end: 20100523
  2. AMN107 [Suspect]
     Dosage: 200 MG, BID
     Route: 048
     Dates: start: 20100529, end: 20100704
  3. AMN107 [Suspect]
     Dosage: 200 MG, BID
     Route: 048
     Dates: start: 20100720
  4. AMN107 [Suspect]
     Dosage: 300 MG, BID
     Route: 048
     Dates: start: 20101026
  5. AMN107 [Suspect]
     Dosage: 400 MG, BID
     Route: 048
     Dates: start: 20101102, end: 20110125
  6. MOHRUS [Concomitant]
     Dosage: 1 DF, UNK
  7. SANCOBA [Concomitant]
  8. PARIET [Concomitant]
     Route: 048
     Dates: start: 20101210
  9. SOLU-CORTEF [Concomitant]
     Indication: PROPHYLAXIS
     Dosage: 100 MG, UNK
     Route: 042
     Dates: start: 20101122, end: 20110208

REACTIONS (2)
  - Platelet count decreased [Recovering/Resolving]
  - Leukopenia [Recovering/Resolving]
